FAERS Safety Report 7113653-4 (Version None)
Quarter: 2010Q4

REPORT INFORMATION
  Report Type: 
  Country: None (occurrence: None)
  Receive Date: 20101119
  Receipt Date: 20101109
  Transmission Date: 20110411
  Serious: Yes (Hospitalization)
  Sender: FDA-Public Use
  Company Number: US-WATSON-2010-14853

PATIENT
  Age: 58 Year
  Sex: Female

DRUGS (1)
  1. FENTANYL-75 [Suspect]
     Indication: PAIN
     Dosage: UNK
     Route: 062

REACTIONS (2)
  - FOREIGN BODY ASPIRATION [None]
  - RESPIRATORY FAILURE [None]
